FAERS Safety Report 25853496 (Version 2)
Quarter: 2025Q4

REPORT INFORMATION
  Report Type: Report from Study
  Country: US (occurrence: US)
  Receive Date: 20250926
  Receipt Date: 20251017
  Transmission Date: 20260119
  Serious: Yes (Death, Hospitalization)
  Sender: BAUSCH AND LOMB
  Company Number: US-BAUSCH-BL-2025-002340

PATIENT
  Age: 72 Year
  Sex: Female

DRUGS (1)
  1. XIFAXAN [Suspect]
     Active Substance: RIFAXIMIN
     Indication: Product used for unknown indication
     Dosage: BID
     Route: 048
     Dates: end: 20250918

REACTIONS (4)
  - Hepatic cirrhosis [Fatal]
  - Hospice care [Unknown]
  - Therapy interrupted [Unknown]
  - Insurance issue [Unknown]
